FAERS Safety Report 5238604-9 (Version None)
Quarter: 2007Q1

REPORT INFORMATION
  Report Type: 
  Country: None (occurrence: None)
  Receive Date: 20070215
  Receipt Date: 20070206
  Transmission Date: 20070707
  Serious: Yes (Life-Threatening)
  Sender: FDA-Public Use
  Company Number: HQWYE910207FEB07

PATIENT
  Sex: Male

DRUGS (2)
  1. EFFEXOR XR [Suspect]
     Dosage: UNKNOWN
     Route: 048
  2. METHADONE HCL [Interacting]
     Dosage: UNKNOWN
     Route: 048

REACTIONS (3)
  - ARRHYTHMIA [None]
  - DRUG INTERACTION [None]
  - MYOCARDIAL INFARCTION [None]
